FAERS Safety Report 4995390-5 (Version None)
Quarter: 2006Q2

REPORT INFORMATION
  Report Type: 
  Country: None (occurrence: None)
  Receive Date: 20060503
  Receipt Date: 20060425
  Transmission Date: 20061013
  Serious: Yes (Other)
  Sender: FDA-Public Use
  Company Number: 2006EN000113

PATIENT
  Age: 13 Year
  Sex: Male

DRUGS (1)
  1. ADAGEN [Suspect]
     Indication: ENZYME ABNORMALITY
     Dosage: IM
     Route: 030
     Dates: start: 19950101

REACTIONS (2)
  - CENTRAL NERVOUS SYSTEM LYMPHOMA [None]
  - OPTIC DISC DISORDER [None]
